FAERS Safety Report 19445289 (Version 1)
Quarter: 2021Q2

REPORT INFORMATION
  Report Type: Spontaneous
  Country: US (occurrence: US)
  Receive Date: 20210622
  Receipt Date: 20210622
  Transmission Date: 20210717
  Serious: Yes (Life-Threatening, Hospitalization)
  Sender: FDA-Public Use
  Company Number: US-LUPIN PHARMACEUTICALS INC.-2021-09824

PATIENT
  Age: 44 Year
  Sex: Female

DRUGS (8)
  1. METHYLERGONOVINE [Suspect]
     Active Substance: METHYLERGONOVINE
     Indication: POSTPARTUM HAEMORRHAGE
     Dosage: 0.2 MICROGRAM, INJECTION
     Route: 030
  2. OXYTOCIN. [Suspect]
     Active Substance: OXYTOCIN
     Indication: POSTPARTUM HAEMORRHAGE
     Dosage: UNK, OXYTOCIN DOSING REACHED A MAXIMUM DOSE OF 18 MILLIUNITS
     Route: 042
  3. MISOPROSTOL. [Suspect]
     Active Substance: MISOPROSTOL
     Indication: POSTPARTUM HAEMORRHAGE
     Dosage: 1000 MICROGRAM
     Route: 054
  4. OXYTOCIN. [Suspect]
     Active Substance: OXYTOCIN
     Indication: LABOUR INDUCTION
     Dosage: UNK, OXYTOCIN WAS TITRATED DURING ACTIVE LABOR WITH THE USE OF AN INTRAUTERINE PRESSURE CATHETER TO
     Route: 042
  5. CEFAZOLIN [Concomitant]
     Active Substance: CEFAZOLIN
     Indication: ANTIBIOTIC PROPHYLAXIS
     Dosage: 1 GRAM
     Route: 065
  6. METHYLERGONOVINE [Suspect]
     Active Substance: METHYLERGONOVINE
     Dosage: 0.2 MILLIGRAM
     Route: 030
  7. OXYTOCIN. [Suspect]
     Active Substance: OXYTOCIN
     Dosage: UNK, 60 UNITS
     Route: 042
  8. PHENYLEPHRINE [Concomitant]
     Active Substance: PHENYLEPHRINE HYDROCHLORIDE
     Indication: HYPOTENSION
     Dosage: 160 MILLIGRAM
     Route: 065

REACTIONS (1)
  - Drug ineffective [Unknown]
